FAERS Safety Report 9785235 (Version 1)
Quarter: 2013Q4

REPORT INFORMATION
  Report Type: Spontaneous
  Country: US (occurrence: None)
  Receive Date: 20131226
  Receipt Date: 20131226
  Transmission Date: 20140711
  Serious: No
  Sender: FDA-Public Use
  Company Number: None

PATIENT
  Age: 34 Year
  Sex: Female
  Weight: 107.7 kg

DRUGS (2)
  1. ISONIAZID [Suspect]
     Indication: TUBERCULOSIS
     Route: 048
     Dates: start: 20131105, end: 20131203
  2. PRIFTIN [Suspect]
     Route: 048

REACTIONS (4)
  - Dyspnoea [None]
  - Cough [None]
  - Rash [None]
  - Lip oedema [None]
